FAERS Safety Report 8155656 (Version 6)
Quarter: 2013Q1

REPORT INFORMATION
  Report Type: Report from Study
  Country: DE (occurrence: DE)
  Receive Date: 20110926
  Receipt Date: 20130117
  Transmission Date: 20140127
  Serious: Yes (Hospitalization)
  Sender: FDA-Public Use
  Company Number: PHHO2011DE15719

PATIENT
  Sex: 0

DRUGS (4)
  1. AFINITOR [Suspect]
     Indication: METASTATIC RENAL CELL CARCINOMA
     Dosage: 10 MG, QD
     Route: 048
     Dates: start: 20110719, end: 20110801
  2. AFINITOR [Suspect]
     Dosage: 5 MG, BID
     Route: 048
     Dates: start: 20110802, end: 20111028
  3. HYDRALAZINE [Concomitant]
  4. PSYCHIATRIC THERAPY [Concomitant]

REACTIONS (2)
  - Pneumonitis [Recovered/Resolved]
  - Muscular weakness [Recovering/Resolving]
